FAERS Safety Report 19423624 (Version 2)
Quarter: 2021Q2

REPORT INFORMATION
  Report Type: Report from Study
  Country: US (occurrence: US)
  Receive Date: 20210616
  Receipt Date: 20210628
  Transmission Date: 20210717
  Serious: Yes (Death, Hospitalization, Other)
  Sender: FDA-Public Use
  Company Number: NVSC2021US135947

PATIENT
  Sex: Male
  Weight: 170 kg

DRUGS (1)
  1. ENTRESTO [Suspect]
     Active Substance: SACUBITRIL\VALSARTAN
     Indication: CARDIAC FAILURE CONGESTIVE
     Dosage: UNK UNK, BID
     Route: 048
     Dates: start: 20200127

REACTIONS (4)
  - Dyspnoea [Unknown]
  - Ventricular fibrillation [Unknown]
  - Pulse abnormal [Unknown]
  - Interstitial lung disease [Fatal]
